FAERS Safety Report 5851055-9 (Version None)
Quarter: 2008Q3

REPORT INFORMATION
  Report Type: 
  Country: None (occurrence: None)
  Receive Date: 20080818
  Receipt Date: 20080805
  Transmission Date: 20090109
  Serious: Yes (Hospitalization)
  Sender: FDA-Public Use
  Company Number: 8029501

PATIENT
  Age: 21 Year
  Sex: Female
  Weight: 48 kg

DRUGS (7)
  1. KEPPRA [Suspect]
     Indication: PARTIAL SEIZURES
     Dosage: 500 MG 2/D, PO
     Route: 048
     Dates: start: 20061015, end: 20070201
  2. PLAQUENIL [Concomitant]
  3. FORADIL [Concomitant]
  4. PULMICORT-100 [Concomitant]
  5. SINGULAIR [Concomitant]
  6. CORTANCYL [Concomitant]
  7. XANAX [Concomitant]

REACTIONS (3)
  - GRAND MAL CONVULSION [None]
  - LUNG DISORDER [None]
  - PYREXIA [None]
